FAERS Safety Report 23608686 (Version 14)
Quarter: 2025Q3

REPORT INFORMATION
  Report Type: Spontaneous
  Country: IN (occurrence: IN)
  Receive Date: 20240308
  Receipt Date: 20250909
  Transmission Date: 20251020
  Serious: Yes (Other)
  Sender: PFIZER
  Company Number: IN-PFIZER INC-2020335861

PATIENT
  Age: 75 Year
  Sex: Female

DRUGS (26)
  1. PALBOCICLIB [Suspect]
     Active Substance: PALBOCICLIB
     Indication: Breast cancer metastatic
     Dosage: 125 MG, 1X/DAY
     Route: 048
     Dates: start: 20200617
  2. PALBOCICLIB [Suspect]
     Active Substance: PALBOCICLIB
     Indication: Metastases to bone
     Dosage: 100 MG, 1X/DAY
  3. PALBOCICLIB [Suspect]
     Active Substance: PALBOCICLIB
     Route: 048
  4. FULVESTRANT [Concomitant]
     Active Substance: FULVESTRANT
     Dosage: 500 MG, MONTHLY
     Route: 030
     Dates: start: 202004
  5. FULVESTRANT [Concomitant]
     Active Substance: FULVESTRANT
     Route: 030
  6. CALCIUM\CHOLECALCIFEROL [Concomitant]
     Active Substance: CALCIUM\CHOLECALCIFEROL
     Dosage: UNK, 1X/DAY
  7. TAFNAT [Concomitant]
     Dosage: 25 MG, 1X/DAY
  8. TAFNAT [Concomitant]
     Dosage: 250 MG, 1X/DAY
  9. ANOVATE [BECLOMETASONE DIPROPIONATE;LIDOCAINE HYDROCHLORIDE;PHENYLEPHR [Concomitant]
  10. CALCIROL [CALCIUM CARBONATE;COLECALCIFEROL] [Concomitant]
  11. CALCIROL [CALCIUM CARBONATE;COLECALCIFEROL] [Concomitant]
  12. ULTRACET [Concomitant]
     Active Substance: ACETAMINOPHEN\TRAMADOL HYDROCHLORIDE
  13. CREMAFFIN PLUS [Concomitant]
  14. CREMAFFIN PLUS [Concomitant]
  15. ZOLEDRONIC ACID [Concomitant]
     Active Substance: ZOLEDRONIC ACID
  16. MECOFOL [Concomitant]
  17. ENZOFLAM [DICLOFENAC SODIUM;PARACETAMOL;SERRAPEPTASE] [Concomitant]
  18. NEUROBION FORTE [Concomitant]
     Active Substance: CYANOCOBALAMIN\PYRIDOXINE HYDROCHLORIDE\THIAMINE DISULFIDE
     Dosage: UNK, 1X/DAY
  19. ALPRAZOLAM [Concomitant]
     Active Substance: ALPRAZOLAM
  20. ALPRAZOLAM [Concomitant]
     Active Substance: ALPRAZOLAM
  21. MECOBAL [Concomitant]
     Dosage: 1 DF, 1X/DAY
  22. ZOLEDRONIC ACID [Concomitant]
     Active Substance: ZOLEDRONIC ACID
     Route: 042
  23. SHELCAL M [Concomitant]
     Dosage: 1 OD
  24. PAN D [DOMPERIDONE;PANTOPRAZOLE] [Concomitant]
     Dosage: 1 DF, 1X/DAY
  25. CALCIROL PLUS [Concomitant]
  26. SEPRODEX [Concomitant]
     Dosage: 1 DF, 1X/DAY

REACTIONS (3)
  - Neuropathy peripheral [Unknown]
  - Hepatitis [Unknown]
  - Haemorrhoids [Unknown]

NARRATIVE: CASE EVENT DATE: 20230101
